FAERS Safety Report 11692755 (Version 6)
Quarter: 2018Q1

REPORT INFORMATION
  Report Type: Spontaneous
  Country: US (occurrence: US)
  Receive Date: 20151103
  Receipt Date: 20180110
  Transmission Date: 20180508
  Serious: Yes (Life-Threatening, Hospitalization, Other)
  Sender: FDA-Public Use
  Company Number: US-MYLANLABS-2015M1038230

PATIENT
  Age: 16 Year
  Sex: Female
  Weight: 48 kg

DRUGS (4)
  1. EPIPEN [Suspect]
     Active Substance: EPINEPHRINE
     Indication: DYSPNOEA
  2. EPIPEN [Suspect]
     Active Substance: EPINEPHRINE
     Indication: HYPERSENSITIVITY
     Dosage: UNK UNK, ONCE
     Route: 030
     Dates: start: 20151025, end: 20151025
  3. EPIPEN [Suspect]
     Active Substance: EPINEPHRINE
     Indication: URTICARIA
  4. EPIPEN [Suspect]
     Active Substance: EPINEPHRINE
     Indication: RASH
     Dosage: 0.3 MG, UNK
     Route: 030
     Dates: start: 20151025, end: 20151025

REACTIONS (10)
  - Product contamination microbial [Unknown]
  - Infective myositis [Unknown]
  - Necrotising myositis [Not Recovered/Not Resolved]
  - Oedema peripheral [Not Recovered/Not Resolved]
  - Injection site pain [Not Recovered/Not Resolved]
  - Clostridial infection [Not Recovered/Not Resolved]
  - Gas gangrene [Not Recovered/Not Resolved]
  - Septic shock [Not Recovered/Not Resolved]
  - Necrotising fasciitis [Unknown]
  - Walking disability [Unknown]

NARRATIVE: CASE EVENT DATE: 201510
